FAERS Safety Report 23260308 (Version 3)
Quarter: 2023Q4

REPORT INFORMATION
  Report Type: Report from Study
  Country: CA (occurrence: CA)
  Receive Date: 20231204
  Receipt Date: 20231220
  Transmission Date: 20240110
  Serious: Yes (Other)
  Sender: FDA-Public Use
  Company Number: CA-JNJFOC-20231175963

PATIENT
  Age: 17 Year
  Sex: Female

DRUGS (2)
  1. REMICADE [Suspect]
     Active Substance: INFLIXIMAB
     Indication: Colitis ulcerative
     Route: 041
     Dates: start: 20160124
  2. REMICADE [Suspect]
     Active Substance: INFLIXIMAB
     Route: 041

REACTIONS (3)
  - Colitis [Unknown]
  - Therapeutic response decreased [Unknown]
  - Off label use [Unknown]

NARRATIVE: CASE EVENT DATE: 20160124
